FAERS Safety Report 5923648-1 (Version None)
Quarter: 2008Q4

REPORT INFORMATION
  Report Type: 
  Country: None (occurrence: None)
  Receive Date: 20081020
  Receipt Date: 20081014
  Transmission Date: 20090506
  Serious: Yes (Hospitalization)
  Sender: FDA-Public Use
  Company Number: PHHO2005NO16783

PATIENT
  Sex: Female
  Weight: 77.4 kg

DRUGS (9)
  1. TRILEPTAL T22413+FCTAB [Suspect]
     Indication: DEMENTIA
     Route: 048
     Dates: start: 20051005, end: 20051013
  2. ALOPAM [Concomitant]
     Indication: AGITATION
     Dates: start: 20050825
  3. BURINEX [Concomitant]
     Dates: start: 20050329
  4. CIPRALEX [Concomitant]
     Indication: DEPRESSION
     Dates: start: 20050523
  5. EBIXA [Concomitant]
     Indication: DEMENTIA
     Dates: start: 20050124
  6. FOLATE SODIUM [Concomitant]
     Indication: FOLATE DEFICIENCY
     Dates: start: 20050216
  7. HEMINEURINE [Concomitant]
     Indication: SLEEP DISORDER
     Dates: start: 20050622
  8. NAPREN [Concomitant]
  9. ACETAMINOPHEN [Concomitant]

REACTIONS (3)
  - ARTHRALGIA [None]
  - HIP FRACTURE [None]
  - HIP SURGERY [None]
